FAERS Safety Report 5952121-X (Version None)
Quarter: 2008Q4

REPORT INFORMATION
  Report Type: 
  Country: None (occurrence: None)
  Receive Date: 20081113
  Receipt Date: 20080509
  Transmission Date: 20090506
  Serious: No
  Sender: FDA-Public Use
  Company Number: A0727248A

PATIENT
  Age: 59 Year
  Sex: Female

DRUGS (8)
  1. CARVEDILOL [Suspect]
     Dosage: 25MG TWICE PER DAY
     Route: 048
     Dates: start: 20080313
  2. COREG [Suspect]
     Dosage: 6.25MG UNKNOWN
     Route: 048
     Dates: start: 20040101
  3. CALCITRIOL [Concomitant]
  4. GABAPENTIN [Concomitant]
  5. LIPITOR [Concomitant]
  6. HYZAAR [Concomitant]
  7. HUMALOG [Concomitant]
  8. LANTUS [Concomitant]

REACTIONS (6)
  - BLOOD PRESSURE INCREASED [None]
  - DYSPNOEA [None]
  - HEART RATE IRREGULAR [None]
  - LIMB DISCOMFORT [None]
  - MUSCULOSKELETAL DISCOMFORT [None]
  - PALPITATIONS [None]
